FAERS Safety Report 25038641 (Version 1)
Quarter: 2025Q1

REPORT INFORMATION
  Report Type: Spontaneous
  Country: BR (occurrence: BR)
  Receive Date: 20250304
  Receipt Date: 20250304
  Transmission Date: 20250409
  Serious: Yes (Hospitalization)
  Sender: BEIGENE
  Company Number: BR-BEIGENE-BGN-2024-017433

PATIENT
  Age: 71 Year
  Weight: 72 kg

DRUGS (8)
  1. BRUKINSA [Suspect]
     Active Substance: ZANUBRUTINIB
     Indication: Waldenstrom^s macroglobulinaemia
     Dosage: 2 CAPS, Q12H
  2. BRUKINSA [Suspect]
     Active Substance: ZANUBRUTINIB
     Dosage: 4 DOSAGE FORM, QD
  3. ACYCLOVIR [Concomitant]
     Active Substance: ACYCLOVIR
  4. AMIODARONE HYDROCHLORIDE [Concomitant]
     Active Substance: AMIODARONE HYDROCHLORIDE
  5. BISOPROLOL FUMARATE [Concomitant]
     Active Substance: BISOPROLOL FUMARATE
  6. PANTOPRAZOLE [Concomitant]
     Active Substance: PANTOPRAZOLE
  7. PREGABALIN [Concomitant]
     Active Substance: PREGABALIN
  8. DIPYRONE [Concomitant]
     Active Substance: DIPYRONE

REACTIONS (2)
  - Tumour pain [Not Recovered/Not Resolved]
  - Neoplasm [Not Recovered/Not Resolved]
